FAERS Safety Report 25269576 (Version 1)
Quarter: 2025Q2

REPORT INFORMATION
  Report Type: Spontaneous
  Country: US (occurrence: US)
  Receive Date: 20250505
  Receipt Date: 20250505
  Transmission Date: 20250716
  Serious: No
  Sender: PURDUE
  Company Number: US-PURDUE PHARMA-USA-2025-0317242

PATIENT
  Sex: Female

DRUGS (3)
  1. BUTRANS [Suspect]
     Active Substance: BUPRENORPHINE
     Indication: Back pain
     Route: 062
     Dates: start: 20250429
  2. BUTRANS [Suspect]
     Active Substance: BUPRENORPHINE
     Indication: Muscle strain
  3. OXYCODONE [Suspect]
     Active Substance: OXYCODONE
     Indication: Back pain
     Route: 065

REACTIONS (2)
  - Expired product administered [Unknown]
  - Inadequate analgesia [Unknown]
